FAERS Safety Report 9154364 (Version 2)
Quarter: 2013Q1

REPORT INFORMATION
  Report Type: Spontaneous
  Country: US (occurrence: None)
  Receive Date: 20130206
  Receipt Date: 20130221
  Transmission Date: 20140127
  Serious: Yes (Hospitalization, Disabling)
  Sender: FDA-Public Use
  Company Number: JPI-P-029307

PATIENT
  Age: 65 Year
  Sex: Female
  Weight: 58.97 kg

DRUGS (21)
  1. XYREM [Suspect]
     Indication: CATAPLEXY
     Route: 048
     Dates: start: 20121228
  2. NUVIGIL (ARMODAFINIL) [Concomitant]
  3. BACTRIM (SULFAMETHOXAZOLE AND TRIMETHOPRIM) [Concomitant]
  4. MORPHINE SULFATE [Concomitant]
  5. FENTANYL [Concomitant]
  6. ZOLOFT (SERTRALINE HYDROCHLORIDE) [Concomitant]
  7. ATIVAN (LORAZEPAM) [Concomitant]
  8. LISINOPRIL [Concomitant]
  9. REQUIP (ROPINIROLE) [Concomitant]
  10. ZOFRAN (ONDANSETRON HYDROCHLORIDE) [Concomitant]
  11. SYNTHROID (LEVOTHYROXINE SODIUM) [Concomitant]
  12. MOMETASONE FUROATE, FORMOTEROL FUMARATE DIHYDRATE (DULERA) [Concomitant]
  13. ESTRADIOL [Concomitant]
  14. FISH OIL CAPSULES [Concomitant]
  15. CYCLOBENZAPRINE HYDROCHLORIDE [Concomitant]
  16. GABAPENTIN [Concomitant]
  17. IBUPROFEN [Concomitant]
  18. LIDOCAINE [Concomitant]
  19. LORAZEPAM [Concomitant]
  20. MULTIVITAMINS [Concomitant]
  21. ERGOCALCIFEROL [Concomitant]

REACTIONS (10)
  - Abnormal dreams [None]
  - Arthropathy [None]
  - Fall [None]
  - Contusion [None]
  - Somnambulism [None]
  - Cerebrovascular accident [None]
  - Contusion [None]
  - Sensory loss [None]
  - Condition aggravated [None]
  - Abnormal sleep-related event [None]
